FAERS Safety Report 8390857-4 (Version None)
Quarter: 2012Q2

REPORT INFORMATION
  Report Type: 
  Country: None (occurrence: None)
  Receive Date: 20120529
  Receipt Date: 20120518
  Transmission Date: 20120825
  Serious: Yes (Hospitalization)
  Sender: FDA-Public Use
  Company Number: JP-VERTEX PHARMACEUTICALS INC.-AE-2012-007649

PATIENT
  Age: 56 Year
  Sex: Male

DRUGS (13)
  1. PEG-INTRON [Concomitant]
     Indication: HEPATITIS C
     Route: 058
     Dates: start: 20120113, end: 20120322
  2. LOXOPROFEN [Concomitant]
     Route: 048
     Dates: start: 20120207
  3. PEG-INTRON [Concomitant]
     Route: 058
     Dates: start: 20120323
  4. REBETOL [Concomitant]
     Route: 048
     Dates: start: 20120420
  5. ADOFEED [Concomitant]
     Route: 061
  6. LIVOSTIN [Concomitant]
     Route: 045
  7. TELAVIC (TELAPREVIR) [Suspect]
     Indication: HEPATITIS C
     Route: 048
     Dates: start: 20120207, end: 20120430
  8. REBETOL [Concomitant]
     Indication: HEPATITIS C
     Route: 048
     Dates: start: 20120113, end: 20120419
  9. SELBEX [Concomitant]
     Route: 048
     Dates: start: 20120207
  10. BRANUTE [Concomitant]
     Route: 048
     Dates: start: 20120302, end: 20120328
  11. POSTERISAN [Concomitant]
     Route: 061
  12. HIRUDOID [Concomitant]
     Route: 061
  13. ALLEGRA [Concomitant]
     Route: 048

REACTIONS (1)
  - ERYTHEMA [None]
